FAERS Safety Report 5788307-7 (Version None)
Quarter: 2008Q2

REPORT INFORMATION
  Report Type: 
  Country: None (occurrence: None)
  Receive Date: 20080625
  Receipt Date: 20080613
  Transmission Date: 20081010
  Serious: Yes (Other)
  Sender: FDA-Public Use
  Company Number: FR-PFIZER INC-2008044434

PATIENT
  Sex: Female
  Weight: 64 kg

DRUGS (4)
  1. LYRICA [Suspect]
     Indication: NEURALGIA
     Route: 048
     Dates: start: 20080501, end: 20080520
  2. TANGANIL [Concomitant]
     Route: 048
  3. TANAKAN [Concomitant]
     Route: 048
  4. LECTIL [Concomitant]
     Route: 048

REACTIONS (3)
  - DYSPNOEA [None]
  - JOINT SWELLING [None]
  - OEDEMA PERIPHERAL [None]
